FAERS Safety Report 9154839 (Version 2)
Quarter: 2013Q1

REPORT INFORMATION
  Report Type: Spontaneous
  Country: US (occurrence: None)
  Receive Date: 20130205
  Receipt Date: 20130318
  Transmission Date: 20140127
  Serious: Yes (Life-Threatening, Other)
  Sender: FDA-Public Use
  Company Number: 2013P1001574

PATIENT
  Age: 47 Year
  Sex: Female

DRUGS (1)
  1. INFUMORPH [Suspect]
     Indication: PAIN
     Dates: end: 20120120

REACTIONS (3)
  - Implant site effusion [None]
  - Cerebral hygroma [None]
  - Post procedural complication [None]
